FAERS Safety Report 4526813-3 (Version None)
Quarter: 2004Q4

REPORT INFORMATION
  Report Type: 
  Country: None (occurrence: None)
  Receive Date: 20041213
  Receipt Date: 20041130
  Transmission Date: 20050328
  Serious: Yes (Other)
  Sender: FDA-Public Use
  Company Number: 2004104292

PATIENT
  Age: 7 Year
  Sex: Male

DRUGS (1)
  1. ZYRTEC-D 12 HOUR [Suspect]
     Indication: HYPERSENSITIVITY

REACTIONS (1)
  - SUPRAVENTRICULAR TACHYCARDIA [None]
